FAERS Safety Report 6260765-3 (Version None)
Quarter: 2009Q3

REPORT INFORMATION
  Report Type: 
  Country: None (occurrence: None)
  Receive Date: 20090708
  Receipt Date: 20090630
  Transmission Date: 20100115
  Serious: Yes (Life-Threatening, Hospitalization, Disabling)
  Sender: FDA-Public Use
  Company Number: CA-AMGEN-QUU352950

PATIENT
  Sex: Male
  Weight: 90.8 kg

DRUGS (5)
  1. ENBREL [Suspect]
     Indication: PSORIATIC ARTHROPATHY
     Route: 058
     Dates: start: 20070101, end: 20090606
  2. METHOTREXATE [Suspect]
     Route: 058
     Dates: start: 20090423, end: 20090606
  3. CRESTOR [Concomitant]
     Route: 048
  4. VENTOLIN [Concomitant]
  5. ADVAIR HFA [Concomitant]

REACTIONS (3)
  - CEREBELLAR EMBOLISM [None]
  - ENDOCARDITIS BACTERIAL [None]
  - STAPHYLOCOCCAL BACTERAEMIA [None]
